FAERS Safety Report 4501912-0 (Version None)
Quarter: 2004Q4

REPORT INFORMATION
  Report Type: 
  Country: None (occurrence: None)
  Receive Date: 20041116
  Receipt Date: 20041104
  Transmission Date: 20050328
  Serious: Yes (Other)
  Sender: FDA-Public Use
  Company Number: PHBS2004BR14903

PATIENT
  Age: 20 Year
  Sex: Female
  Weight: 70 kg

DRUGS (1)
  1. VOLTAREN [Suspect]
     Indication: PAIN
     Dosage: 50 MG, Q8H
     Route: 048
     Dates: start: 20041101

REACTIONS (2)
  - DRUG EXPOSURE DURING PREGNANCY [None]
  - GENITAL HAEMORRHAGE [None]
